FAERS Safety Report 17444730 (Version 1)
Quarter: 2020Q1

REPORT INFORMATION
  Report Type: Spontaneous
  Country: DE (occurrence: DE)
  Receive Date: 20200221
  Receipt Date: 20200221
  Transmission Date: 20200409
  Serious: Yes (Hospitalization)
  Sender: FDA-Public Use
  Company Number: DE-TEVA-2020-DE-1189847

PATIENT
  Age: 68 Year
  Sex: Male
  Weight: 63 kg

DRUGS (6)
  1. IBUPROFEN. [Interacting]
     Active Substance: IBUPROFEN
     Dosage: 600 MG, 1-1-1-0
     Route: 048
  2. AMIODARON [Suspect]
     Active Substance: AMIODARONE
     Dosage: 600 MILLIGRAM DAILY; 1-1-1-0
     Route: 048
  3. METOPROLOL. [Concomitant]
     Active Substance: METOPROLOL
     Dosage: 1-0-1-0
     Route: 048
  4. ESOMEPRAZOL [Concomitant]
     Active Substance: ESOMEPRAZOLE
     Dosage: 20 MILLIGRAM DAILY; 1-0-0-0
     Route: 048
  5. ENOXAPARIN [Concomitant]
     Active Substance: ENOXAPARIN
     Dosage: 60 MILLIGRAM DAILY; 0-0-0-1
     Route: 058
  6. TORASEMID [Interacting]
     Active Substance: TORSEMIDE
     Dosage: 10 MILLIGRAM DAILY; 1-0-0-0
     Route: 048

REACTIONS (5)
  - Labelled drug-drug interaction medication error [Unknown]
  - Product prescribing error [Unknown]
  - General physical health deterioration [Unknown]
  - Dyspnoea [Unknown]
  - Renal function test abnormal [Unknown]
